FAERS Safety Report 18733046 (Version 3)
Quarter: 2021Q3

REPORT INFORMATION
  Report Type: Report from Study
  Country: None (occurrence: US)
  Receive Date: 20210113
  Receipt Date: 20210803
  Transmission Date: 20211014
  Serious: Yes (Hospitalization)
  Sender: FDA-Public Use
  Company Number: US-ABBVIE-20K-163-3704464-00

PATIENT
  Age: 48 Year
  Sex: Female
  Weight: 81.27 kg

DRUGS (17)
  1. METHOTREXATE. [Concomitant]
     Active Substance: METHOTREXATE
     Indication: RHEUMATOID ARTHRITIS
  2. PREDNISONE. [Concomitant]
     Active Substance: PREDNISONE
     Indication: INFLAMMATION
  3. TURMERIC [Concomitant]
     Active Substance: HERBALS\TURMERIC
     Indication: SUPPLEMENTATION THERAPY
  4. VITAMIN D3 [Concomitant]
     Active Substance: CHOLECALCIFEROL
     Indication: SUPPLEMENTATION THERAPY
  5. RINVOQ [Suspect]
     Active Substance: UPADACITINIB
     Route: 048
     Dates: start: 20201218, end: 2021
  6. GABAPENTIN. [Concomitant]
     Active Substance: GABAPENTIN
     Indication: INFLAMMATION
  7. MEDROL [Concomitant]
     Active Substance: METHYLPREDNISOLONE
     Indication: RHEUMATOID ARTHRITIS
  8. RINVOQ [Suspect]
     Active Substance: UPADACITINIB
     Indication: RHEUMATOID ARTHRITIS
     Route: 048
     Dates: start: 202006, end: 20201114
  9. AMBIANE [Concomitant]
     Indication: SLEEP DISORDER
  10. DEXILANT [Concomitant]
     Active Substance: DEXLANSOPRAZOLE
     Indication: IRRITABLE BOWEL SYNDROME
  11. TRAMADOL. [Concomitant]
     Active Substance: TRAMADOL
     Indication: PAIN
  12. FOLIC ACID. [Concomitant]
     Active Substance: FOLIC ACID
     Indication: PRODUCT USED FOR UNKNOWN INDICATION
  13. ZINC. [Concomitant]
     Active Substance: ZINC
     Indication: SUPPLEMENTATION THERAPY
  14. FISH OIL [Concomitant]
     Active Substance: FISH OIL
     Indication: SUPPLEMENTATION THERAPY
  15. VITAMIN B12 [Concomitant]
     Active Substance: CYANOCOBALAMIN
     Indication: SUPPLEMENTATION THERAPY
  16. SYNTHROID [Concomitant]
     Active Substance: LEVOTHYROXINE SODIUM
     Indication: THYROID CANCER
  17. MONTELUKAST [Concomitant]
     Active Substance: MONTELUKAST SODIUM
     Indication: HYPERSENSITIVITY

REACTIONS (13)
  - Loss of consciousness [Recovered/Resolved]
  - Illness [Recovered/Resolved]
  - Dyspnoea [Recovered/Resolved]
  - Oxygen saturation decreased [Recovered/Resolved]
  - Anxiety [Recovered/Resolved]
  - Mobility decreased [Unknown]
  - Ankylosing spondylitis [Unknown]
  - Drug ineffective [Not Recovered/Not Resolved]
  - Oxygen saturation decreased [Recovered/Resolved]
  - Feeling cold [Recovering/Resolving]
  - Cerebral atrophy [Unknown]
  - Bronchitis [Unknown]
  - Pneumonia [Recovering/Resolving]

NARRATIVE: CASE EVENT DATE: 202011
